FAERS Safety Report 5278928-2 (Version None)
Quarter: 2007Q1

REPORT INFORMATION
  Report Type: 
  Country: None (occurrence: None)
  Receive Date: 20070328
  Receipt Date: 20070314
  Transmission Date: 20070707
  Serious: Yes (Hospitalization, Other)
  Sender: FDA-Public Use
  Company Number: PHBS2007JP02302

PATIENT
  Age: 76 Year
  Sex: Female
  Weight: 45 kg

DRUGS (8)
  1. GLEEVEC [Suspect]
     Indication: CHRONIC MYELOID LEUKAEMIA
     Dosage: 200 MG/DAY
     Route: 048
     Dates: start: 20020101
  2. GLEEVEC [Suspect]
     Dosage: 200MG/DAY
     Route: 048
     Dates: start: 20040628, end: 20070220
  3. MAGNESIUM OXIDE HEAVY [Concomitant]
     Indication: CONSTIPATION
     Dosage: 1G
     Route: 048
     Dates: start: 20000703, end: 20070220
  4. MUCOSOLVAN [Concomitant]
     Dosage: 45 MG PO
     Route: 048
  5. LAC B [Concomitant]
     Dosage: 3G
     Route: 048
  6. HYDREA [Concomitant]
  7. CYMERIN [Concomitant]
     Dates: start: 20050901
  8. PREDONINE [Suspect]
     Indication: PROPHYLAXIS

REACTIONS (10)
  - DRY SKIN [None]
  - ECZEMA ASTEATOTIC [None]
  - GASTRIC CANCER [None]
  - HEPATIC FAILURE [None]
  - HEPATITIS B [None]
  - LIVER DISORDER [None]
  - PANCYTOPENIA [None]
  - PYREXIA [None]
  - RASH [None]
  - SKIN EXFOLIATION [None]
